FAERS Safety Report 4552070-8 (Version None)
Quarter: 2005Q1

REPORT INFORMATION
  Report Type: 
  Country: None (occurrence: None)
  Receive Date: 20050113
  Receipt Date: 20041222
  Transmission Date: 20050727
  Serious: Yes (Hospitalization, Disabling)
  Sender: FDA-Public Use
  Company Number: US-MERCK-0412USA02766

PATIENT
  Age: 76 Year
  Sex: Female

DRUGS (6)
  1. VIOXX [Suspect]
     Indication: ARTHRALGIA
     Route: 048
     Dates: start: 20020425, end: 20020801
  2. ALLEGRA [Concomitant]
     Route: 065
  3. PRILOSEC [Concomitant]
     Route: 065
  4. TOPROL-XL [Concomitant]
     Route: 065
  5. FLONASE [Concomitant]
     Route: 065
  6. ALLERGENIC EXTRACT [Concomitant]
     Route: 065

REACTIONS (4)
  - CEREBROVASCULAR ACCIDENT [None]
  - DIVERTICULUM [None]
  - GASTROOESOPHAGEAL REFLUX DISEASE [None]
  - ULCER [None]
